FAERS Safety Report 8481885-9 (Version None)
Quarter: 2012Q3

REPORT INFORMATION
  Report Type: 
  Country: None (occurrence: None)
  Receive Date: 20120702
  Receipt Date: 20120626
  Transmission Date: 20120928
  Serious: Yes (Hospitalization)
  Sender: FDA-Public Use
  Company Number: US-GILEAD-2012-0054091

PATIENT
  Sex: Female

DRUGS (11)
  1. ALBUTEROL [Concomitant]
  2. CICLESONIDE [Concomitant]
  3. HYDROXYUREA [Concomitant]
  4. ASPIRIN [Suspect]
  5. LETAIRIS [Suspect]
     Indication: SICKLE CELL ANAEMIA
  6. DEFERASIROX [Concomitant]
  7. LETAIRIS [Suspect]
     Indication: PULMONARY HYPERTENSION
     Dosage: 10 MG, UNK
     Route: 048
     Dates: start: 20120326
  8. TADALAFIL [Concomitant]
     Indication: PULMONARY ARTERIAL HYPERTENSION
  9. FOLIC ACID [Concomitant]
  10. SODIUM CHLORIDE [Concomitant]
  11. NAPROXEN [Concomitant]

REACTIONS (1)
  - PNEUMONIA [None]
